FAERS Safety Report 10404440 (Version 1)
Quarter: 2014Q1

REPORT INFORMATION
  Report Type: Spontaneous
  Country: US (occurrence: None)
  Receive Date: 20140214
  Receipt Date: 20140214
  Transmission Date: 20141002
  Serious: No
  Sender: FDA-Public Use
  Company Number: A-US2014-93963

PATIENT
  Age: 68 Year
  Sex: Male

DRUGS (4)
  1. OPSUMIT (MACITENTAN) [Suspect]
     Indication: PRODUCT USED FOR UNKNOWN INDICATION
     Route: 048
  2. ADCIRCA (TADLAFIL) [Concomitant]
  3. REMODULIN (TREPROSTINIL SODIUM) [Concomitant]
  4. COUMADIN (WARFARIN SODIUM) [Concomitant]

REACTIONS (2)
  - Diarrhoea [None]
  - Headache [None]
